FAERS Safety Report 6917159-4 (Version None)
Quarter: 2010Q3

REPORT INFORMATION
  Report Type: 
  Country: None (occurrence: None)
  Receive Date: 20100810
  Receipt Date: 20090505
  Transmission Date: 20110219
  Serious: No
  Sender: FDA-Public Use
  Company Number: US-PFIZER INC-2009182339

PATIENT
  Sex: Female

DRUGS (4)
  1. DETROL LA [Suspect]
     Dosage: 4 MG, 2X/DAY
     Dates: start: 20080701, end: 20081204
  2. FLORINEF [Suspect]
     Indication: SYNCOPE
     Dosage: UNK
  3. FLORINEF [Suspect]
     Indication: VOLUME BLOOD DECREASED
  4. COREG [Suspect]
     Dosage: UNK

REACTIONS (3)
  - DIZZINESS [None]
  - OVERDOSE [None]
  - SYNCOPE [None]
